FAERS Safety Report 13522081 (Version 1)
Quarter: 2017Q2

REPORT INFORMATION
  Report Type: Spontaneous
  Country: US (occurrence: US)
  Receive Date: 20170508
  Receipt Date: 20170508
  Transmission Date: 20170830
  Serious: Yes (Hospitalization)
  Sender: FDA-Public Use
  Company Number: None

PATIENT
  Age: 74 Year
  Sex: Female
  Weight: 59.02 kg

DRUGS (4)
  1. CLARINDIN [Concomitant]
  2. LOVASTAIN [Concomitant]
  3. DIVALPROEX [Suspect]
     Active Substance: DIVALPROEX SODIUM
     Indication: BIPOLAR DISORDER
     Route: 048
     Dates: start: 201403
  4. SYNTHROID [Concomitant]
     Active Substance: LEVOTHYROXINE SODIUM

REACTIONS (11)
  - Feeding disorder [None]
  - Spinal fracture [None]
  - Asthenia [None]
  - Coagulopathy [None]
  - Gait disturbance [None]
  - Sinusitis [None]
  - Wheezing [None]
  - Weight decreased [None]
  - Foot fracture [None]
  - Contusion [None]
  - Dyspnoea [None]

NARRATIVE: CASE EVENT DATE: 201404
